FAERS Safety Report 6428194-7 (Version None)
Quarter: 2009Q4

REPORT INFORMATION
  Report Type: 
  Country: None (occurrence: None)
  Receive Date: 20091105
  Receipt Date: 20091029
  Transmission Date: 20100525
  Serious: Yes (Hospitalization)
  Sender: FDA-Public Use
  Company Number: JP-NOVOPROD-300130

PATIENT
  Sex: Female

DRUGS (4)
  1. PENFILL R CHU [Suspect]
     Indication: TYPE 2 DIABETES MELLITUS
     Dosage: 14IU(6-6-2)
     Route: 058
     Dates: start: 20090926, end: 20091012
  2. PENFILL N CHU [Suspect]
     Indication: TYPE 2 DIABETES MELLITUS
     Dosage: 5IU(0-0-0-5)/SC
     Dates: start: 20090926, end: 20091012
  3. ALOSENN                            /00476901/ [Concomitant]
     Dosage: NOT REPORTED/PO
     Dates: start: 20090926
  4. MAGMITT [Concomitant]
     Dosage: NOT REPORTED/PO
     Dates: start: 20090926

REACTIONS (3)
  - ALANINE AMINOTRANSFERASE INCREASED [None]
  - ASPARTATE AMINOTRANSFERASE INCREASED [None]
  - LIVER DISORDER [None]
